FAERS Safety Report 9098057 (Version 1)
Quarter: 2013Q1

REPORT INFORMATION
  Report Type: Spontaneous
  Country: CH (occurrence: CH)
  Receive Date: 20130213
  Receipt Date: 20130213
  Transmission Date: 20140127
  Serious: Yes (Other)
  Sender: FDA-Public Use
  Company Number: CH-009507513-1301CHE004106

PATIENT
  Age: 70 Year
  Sex: Male

DRUGS (5)
  1. PEGINTERFERON ALFA-2B [Suspect]
     Indication: HEPATITIS C
     Dosage: UNK
     Route: 051
     Dates: start: 20120509
  2. INCIVO [Suspect]
     Indication: HEPATITIS C
     Dosage: 2250 MG, DAILY DOSAGE
     Route: 048
     Dates: start: 20121002
  3. COPEGUS [Suspect]
     Indication: HEPATITIS C
     Dosage: UNK
     Route: 048
     Dates: start: 20120509
  4. CERTICAN [Concomitant]
     Dosage: UNK
     Route: 048
     Dates: start: 1998
  5. CELLCEPT [Concomitant]
     Dosage: UNK
     Route: 048
     Dates: start: 1998

REACTIONS (2)
  - Retinal disorder [Recovered/Resolved]
  - Visual impairment [Recovered/Resolved]
